FAERS Safety Report 4518270-8 (Version None)
Quarter: 2004Q4

REPORT INFORMATION
  Report Type: 
  Country: None (occurrence: None)
  Receive Date: 20041202
  Receipt Date: 20040102
  Transmission Date: 20050328
  Serious: Yes (Hospitalization)
  Sender: FDA-Public Use
  Company Number: 178747

PATIENT
  Age: 51 Year
  Sex: Female

DRUGS (5)
  1. AVONEX [Suspect]
     Indication: MULTIPLE SCLEROSIS
     Dosage: 30 UG;QW;IM
     Route: 030
     Dates: start: 20010401, end: 20030613
  2. PAXIL [Concomitant]
  3. PREMARIN [Concomitant]
  4. ADVAIR DISKUS 100/50 [Concomitant]
  5. COMBIVENT [Concomitant]

REACTIONS (24)
  - ANTINUCLEAR ANTIBODY POSITIVE [None]
  - ASTHMA [None]
  - DEHYDRATION [None]
  - DERMATITIS [None]
  - DISEASE RECURRENCE [None]
  - DRUG ERUPTION [None]
  - DRUG HYPERSENSITIVITY [None]
  - DRUG TOXICITY [None]
  - EOSINOPHILIA [None]
  - HAEMOGLOBIN DECREASED [None]
  - INFLUENZA LIKE ILLNESS [None]
  - LUNG NEOPLASM [None]
  - LUPUS-LIKE SYNDROME [None]
  - LYMPHADENITIS [None]
  - LYMPHADENOPATHY [None]
  - LYMPHADENOPATHY MEDIASTINAL [None]
  - LYMPHOID TISSUE HYPERPLASIA [None]
  - NECROSIS [None]
  - NECROTISING GRANULOMATOUS LYMPHADENITIS [None]
  - PAIN [None]
  - PLASMACYTOSIS [None]
  - PLEURAL EFFUSION [None]
  - SINUSITIS [None]
  - SPLENOMEGALY [None]
